FAERS Safety Report 5340376-4 (Version None)
Quarter: 2007Q2

REPORT INFORMATION
  Report Type: 
  Country: None (occurrence: None)
  Receive Date: 20070405
  Receipt Date: 20070111
  Transmission Date: 20071010
  Serious: Yes (Hospitalization)
  Sender: FDA-Public Use
  Company Number: US200701002232

PATIENT
  Age: 73 Year
  Sex: Female

DRUGS (1)
  1. CYMBALTA [Suspect]
     Indication: NEURALGIA
     Dosage: 30 MG, DAILY (1/D)
     Dates: start: 20060101, end: 20060101

REACTIONS (1)
  - SYNCOPE [None]
